FAERS Safety Report 9069271 (Version 2)
Quarter: 2013Q1

REPORT INFORMATION
  Report Type: Report from Study
  Country: DE (occurrence: DE)
  Receive Date: 20130214
  Receipt Date: 20130214
  Transmission Date: 20140127
  Serious: Yes (Hospitalization)
  Sender: FDA-Public Use
  Company Number: DE-ROCHE-1183906

PATIENT
  Age: 69 None
  Sex: Male
  Weight: 73 kg

DRUGS (5)
  1. BEVACIZUMAB [Suspect]
     Indication: COLORECTAL CANCER METASTATIC
     Dosage: MOST RECENT ADMINISTRATION PRIOR TO SAE 16/JAN/2013, LAST DOSE ADMINISTERED 5 MG/KG
     Route: 042
     Dates: start: 20121107
  2. LEUCOVORIN [Suspect]
     Indication: COLORECTAL CANCER METASTATIC
     Dosage: MOST RECENT ADMINISTRATION PRIOR TO SAE 16/JAN/2013, LAST DOSE ADMINISTERED 200 MG/M2
     Route: 042
     Dates: start: 20121107
  3. 5-FLUOROURACIL [Suspect]
     Indication: COLORECTAL CANCER METASTATIC
     Dosage: MOST RECENT ADMINISTRATION PRIOR TO SAE 16/JAN/2013
     Route: 042
     Dates: start: 20121107
  4. OXALIPLATIN [Suspect]
     Indication: COLORECTAL CANCER METASTATIC
     Dosage: MOST RECENT DOSE PRIOR TO SAE 16/JAN/2013, LAST DOSE ADMINISTERED 85 MG/M2
     Route: 042
     Dates: start: 20121107
  5. IRINOTECAN [Suspect]
     Indication: COLORECTAL CANCER METASTATIC
     Dosage: MOST RECENT ADMINISTRATION PRIOR TO SAE 16/JAN/2013, LAST DOSE ADMINISTERED 165 MG/M2
     Route: 042
     Dates: start: 20121107

REACTIONS (1)
  - Hiccups [Recovering/Resolving]
